FAERS Safety Report 5478644-8 (Version None)
Quarter: 2007Q4

REPORT INFORMATION
  Report Type: 
  Country: None (occurrence: None)
  Receive Date: 20071005
  Receipt Date: 20070925
  Transmission Date: 20080405
  Serious: Yes (Hospitalization)
  Sender: FDA-Public Use
  Company Number: US-ELI_LILLY_AND_COMPANY-US200709006176

PATIENT
  Sex: Female

DRUGS (1)
  1. CYMBALTA [Suspect]
     Indication: PAIN
     Dosage: UNK MG, UNK

REACTIONS (6)
  - AGITATION [None]
  - ASTHENIA [None]
  - BLOOD POTASSIUM DECREASED [None]
  - DIZZINESS [None]
  - NAUSEA [None]
  - VOMITING [None]
